FAERS Safety Report 10776137 (Version 1)
Quarter: 2015Q1

REPORT INFORMATION
  Report Type: Spontaneous
  Country: US (occurrence: US)
  Receive Date: 20150209
  Receipt Date: 20150209
  Transmission Date: 20150721
  Serious: No
  Sender: FDA-Public Use
  Company Number: US-GLAXOSMITHKLINE-A1079274A

PATIENT

DRUGS (1)
  1. BENLYSTA [Suspect]
     Active Substance: BELIMUMAB
     Indication: PRODUCT USED FOR UNKNOWN INDICATION
     Dosage: 652.8 MLINCREASED TO 1173 ML
     Route: 065
     Dates: start: 2011

REACTIONS (5)
  - Feeling abnormal [Unknown]
  - Drug effect decreased [Unknown]
  - Fatigue [Unknown]
  - Pain [Unknown]
  - Therapeutic response unexpected [Unknown]
